FAERS Safety Report 10082776 (Version 3)
Quarter: 2014Q2

REPORT INFORMATION
  Report Type: Report from Study
  Country: DE (occurrence: DE)
  Receive Date: 20140416
  Receipt Date: 20140506
  Transmission Date: 20141212
  Serious: Yes (Hospitalization)
  Sender: FDA-Public Use
  Company Number: DE-GILEAD-2014-0099130

PATIENT
  Sex: Male
  Weight: 73 kg

DRUGS (12)
  1. RANOLAZINE [Suspect]
     Indication: ANGINA PECTORIS
     Dosage: 1000 MG, BID
     Route: 048
     Dates: start: 20121017
  2. RANOLAZINE [Suspect]
     Dosage: 500 UNK, UNK
     Route: 048
     Dates: start: 20121011, end: 20121016
  3. ASS [Concomitant]
  4. METOSUCCINAT [Concomitant]
  5. BLOPRESS [Concomitant]
  6. TOREM                              /01036501/ [Concomitant]
  7. MOLSIDOMIN [Concomitant]
  8. CRESTOR [Concomitant]
  9. EZETROL [Concomitant]
  10. ZODIN                              /06312301/ [Concomitant]
  11. PANTOZOL                           /01263204/ [Concomitant]
  12. SALBUTAMOL [Concomitant]

REACTIONS (2)
  - Hypoglycaemia [Recovered/Resolved]
  - Presyncope [Recovered/Resolved]
